FAERS Safety Report 4443010-0 (Version None)
Quarter: 2004Q3

REPORT INFORMATION
  Report Type: 
  Country: None (occurrence: None)
  Receive Date: 20040903
  Receipt Date: 20040629
  Transmission Date: 20050211
  Serious: Yes (Other)
  Sender: FDA-Public Use
  Company Number: 2004UW13526

PATIENT
  Age: 35 Year
  Sex: Male

DRUGS (2)
  1. CRESTOR [Suspect]
     Dosage: 20 MG QD PO
     Route: 048
  2. CRESTOR [Suspect]
     Dosage: 10 MG QD PO
     Route: 048

REACTIONS (3)
  - ALBUMINURIA [None]
  - GLOMERULONEPHRITIS PROLIFERATIVE [None]
  - PROTEINURIA [None]
